FAERS Safety Report 7717369 (Version 3)
Quarter: 2013Q2

REPORT INFORMATION
  Report Type: Spontaneous
  Country: JP (occurrence: JP)
  Receive Date: 20101217
  Receipt Date: 20130628
  Transmission Date: 20140414
  Serious: Yes (Hospitalization, Other)
  Sender: FDA-Public Use
  Company Number: JP-BIOGENIDEC-2010BI001551

PATIENT
  Age: 30 Year
  Sex: Female

DRUGS (4)
  1. AVONEX [Suspect]
     Indication: RELAPSING-REMITTING MULTIPLE SCLEROSIS
     Route: 030
     Dates: start: 20090424, end: 20111110
  2. LIORESAL [Concomitant]
     Dates: start: 20100121
  3. METHYCOBAL [Concomitant]
  4. LOXONIN [Concomitant]
     Dates: start: 20090908

REACTIONS (7)
  - Neuromyelitis optica [Unknown]
  - Dry skin [Unknown]
  - Asthenopia [Unknown]
  - Tension headache [Recovered/Resolved]
  - Headache [Unknown]
  - Neurogenic bladder [Unknown]
  - Multiple sclerosis relapse [Recovered/Resolved]
